FAERS Safety Report 14450087 (Version 1)
Quarter: 2018Q1

REPORT INFORMATION
  Report Type: Other
  Country: IT (occurrence: IT)
  Receive Date: 20180129
  Receipt Date: 20180129
  Transmission Date: 20180509
  Serious: Yes (Other)
  Sender: FDA-Public Use
  Company Number: IT-ORCHID HEALTHCARE-2040902

PATIENT
  Age: 8 Year
  Sex: Female
  Weight: 29 kg

DRUGS (1)
  1. MEMANTINE HYDROCHLORIDE. [Suspect]
     Active Substance: MEMANTINE HYDROCHLORIDE
     Route: 065

REACTIONS (3)
  - Psychotic disorder [Unknown]
  - Anxiety [Unknown]
  - Psychomotor hyperactivity [Unknown]
